FAERS Safety Report 13298280 (Version 1)
Quarter: 2017Q1

REPORT INFORMATION
  Report Type: Spontaneous
  Country: US (occurrence: US)
  Receive Date: 20170306
  Receipt Date: 20170306
  Transmission Date: 20170428
  Serious: No
  Sender: FDA-Public Use
  Company Number: US-TEVA-734690ACC

PATIENT
  Age: 58 Year
  Sex: Male
  Weight: 67.12 kg

DRUGS (9)
  1. MAXIMUM STRENGTH MUCUS-DM [Suspect]
     Active Substance: DEXTROMETHORPHAN\GUAIFENESIN
     Indication: COUGH
     Dosage: 2 DOSAGE FORMS DAILY; 1 DF = 1200 MG GUAIFENESIN + 60 MG DEXTROMETHORPHAN HYDROBROMIDE
     Route: 048
     Dates: start: 20170106, end: 20170112
  2. OMEPRAZOLE. [Concomitant]
     Active Substance: OMEPRAZOLE
  3. CLOPIDOGREL [Concomitant]
     Active Substance: CLOPIDOGREL BISULFATE
  4. COREG [Concomitant]
     Active Substance: CARVEDILOL
  5. HUMALOG [Concomitant]
     Active Substance: INSULIN LISPRO
     Dates: start: 201405
  6. NASACORT [Concomitant]
     Active Substance: TRIAMCINOLONE ACETONIDE
  7. MULTIVITAMIN [Concomitant]
     Active Substance: VITAMINS
  8. PRINIVIL [Concomitant]
     Active Substance: LISINOPRIL
  9. ATORVASTATIN [Concomitant]
     Active Substance: ATORVASTATIN

REACTIONS (1)
  - Blood glucose increased [Recovering/Resolving]

NARRATIVE: CASE EVENT DATE: 20170108
